FAERS Safety Report 17871948 (Version 1)
Quarter: 2020Q2

REPORT INFORMATION
  Report Type: Spontaneous
  Country: US (occurrence: US)
  Receive Date: 20200608
  Receipt Date: 20200608
  Transmission Date: 20200714
  Serious: No
  Sender: FDA-Public Use
  Company Number: US-KRAMERLABS-2020-US-001668

PATIENT
  Sex: Female

DRUGS (1)
  1. KETOCONAZOLE (NON-SPECIFIC) [Suspect]
     Active Substance: KETOCONAZOLE
     Indication: PRODUCT USED FOR UNKNOWN INDICATION
     Dosage: DIME TO NICKLE SIZE AMOUNT
     Route: 061
     Dates: start: 201801, end: 20200123

REACTIONS (1)
  - Blepharospasm [Unknown]

NARRATIVE: CASE EVENT DATE: 201801
